FAERS Safety Report 4988732-8 (Version None)
Quarter: 2006Q2

REPORT INFORMATION
  Report Type: 
  Country: None (occurrence: None)
  Receive Date: 20060502
  Receipt Date: 20050509
  Transmission Date: 20061013
  Serious: Yes (Hospitalization)
  Sender: FDA-Public Use
  Company Number: US-MERCK-0505USA01153

PATIENT
  Age: 50 Year
  Sex: Male
  Weight: 127 kg

DRUGS (7)
  1. VIOXX [Suspect]
     Indication: GOUT
     Route: 048
     Dates: start: 20020923, end: 20031201
  2. VIOXX [Suspect]
     Route: 048
     Dates: start: 20030106, end: 20030303
  3. VIOXX [Suspect]
     Route: 048
     Dates: end: 20040106
  4. VIOXX [Suspect]
     Indication: RHEUMATOID ARTHRITIS
     Route: 048
     Dates: start: 20020923, end: 20031201
  5. VIOXX [Suspect]
     Route: 048
     Dates: start: 20030106, end: 20030303
  6. VIOXX [Suspect]
     Route: 048
     Dates: end: 20040106
  7. ASPIRIN [Concomitant]
     Route: 065

REACTIONS (24)
  - ARTERIOSCLEROSIS [None]
  - BASILAR ARTERY STENOSIS [None]
  - CEREBELLAR INFARCTION [None]
  - CEREBROVASCULAR ACCIDENT [None]
  - CHRONIC OBSTRUCTIVE PULMONARY DISEASE [None]
  - DEPRESSION [None]
  - DIABETES MELLITUS INADEQUATE CONTROL [None]
  - DIABETES MELLITUS NON-INSULIN-DEPENDENT [None]
  - DIPLOPIA [None]
  - DYSPEPSIA [None]
  - FACIAL PALSY [None]
  - HEPATIC MASS [None]
  - LEUKOCYTOSIS [None]
  - LOBAR PNEUMONIA [None]
  - MUSCLE SPASMS [None]
  - NORMOCHROMIC NORMOCYTIC ANAEMIA [None]
  - OVERDOSE [None]
  - PAIN IN EXTREMITY [None]
  - PNEUMONIA ASPIRATION [None]
  - PYREXIA [None]
  - RENAL FAILURE ACUTE [None]
  - THERAPY NON-RESPONDER [None]
  - VERTEBRAL ARTERY OCCLUSION [None]
  - VERTIGO [None]
